FAERS Safety Report 8484732-4 (Version None)
Quarter: 2012Q3

REPORT INFORMATION
  Report Type: 
  Country: None (occurrence: None)
  Receive Date: 20120703
  Receipt Date: 20120515
  Transmission Date: 20120928
  Serious: No
  Sender: FDA-Public Use
  Company Number: US-TEVA-338238USA

PATIENT
  Sex: Female
  Weight: 52.21 kg

DRUGS (5)
  1. GLATIRAMER ACETATE [Concomitant]
     Indication: MULTIPLE SCLEROSIS
     Dosage: 20 MILLIGRAM;
     Route: 058
  2. CARVEDILOL [Concomitant]
     Indication: CARDIOMYOPATHY
     Dosage: 3.125 MILLIGRAM;
     Route: 048
  3. MECLIZINE HYDROCHLORIDE [Concomitant]
     Indication: DIZZINESS
     Dosage: 75 MILLIGRAM;
     Route: 048
  4. NUVIGIL [Suspect]
     Indication: FATIGUE
     Dosage: 150 MILLIGRAM;
     Route: 048
     Dates: start: 20120501, end: 20120506
  5. RAMIPRIL [Concomitant]
     Indication: CARDIOMYOPATHY
     Dosage: 5 MILLIGRAM;
     Route: 048

REACTIONS (5)
  - CHEST PAIN [None]
  - OFF LABEL USE [None]
  - PARAESTHESIA [None]
  - DECREASED APPETITE [None]
  - FATIGUE [None]
